FAERS Safety Report 7897478-8 (Version None)
Quarter: 2011Q4

REPORT INFORMATION
  Report Type: 
  Country: None (occurrence: None)
  Receive Date: 20111107
  Receipt Date: 20111028
  Transmission Date: 20120403
  Serious: Yes (Other)
  Sender: FDA-Public Use
  Company Number: FR-UCBSA-044553

PATIENT
  Age: 78 Year
  Sex: Female

DRUGS (4)
  1. EZETIMIBE [Concomitant]
     Route: 048
  2. IRBESARTAN [Concomitant]
     Route: 048
  3. KEPPRA [Suspect]
     Route: 048
  4. ALPHACAINE [Interacting]
     Dates: start: 20110101

REACTIONS (2)
  - STATUS EPILEPTICUS [None]
  - DRUG INTERACTION [None]
